FAERS Safety Report 17441921 (Version 1)
Quarter: 2020Q1

REPORT INFORMATION
  Report Type: Spontaneous
  Country: CA (occurrence: CA)
  Receive Date: 20200220
  Receipt Date: 20200220
  Transmission Date: 20200409
  Serious: Yes (Hospitalization, Other)
  Sender: FDA-Public Use
  Company Number: CA-SHIRE-CA202005700

PATIENT

DRUGS (1)
  1. GAMMAGARD LIQUID [Suspect]
     Active Substance: HUMAN IMMUNOGLOBULIN G
     Indication: IMMUNE THROMBOCYTOPENIC PURPURA
     Dosage: 70 GRAM, 1X/DAY:QD
     Route: 042

REACTIONS (5)
  - Nuchal rigidity [Unknown]
  - Headache [Recovered/Resolved]
  - Haemolysis [Recovered/Resolved]
  - Meningitis aseptic [Recovered/Resolved]
  - Haemorrhage intracranial [Recovered/Resolved]
